FAERS Safety Report 7094071-4 (Version None)
Quarter: 2010Q4

REPORT INFORMATION
  Report Type: 
  Country: None (occurrence: None)
  Receive Date: 20101109
  Receipt Date: 20101109
  Transmission Date: 20110411
  Serious: Yes (Other)
  Sender: FDA-Public Use
  Company Number: None

PATIENT
  Age: 75 Year
  Sex: Female
  Weight: 78.9259 kg

DRUGS (2)
  1. LEVAQUIN [Suspect]
     Indication: CHRONIC OBSTRUCTIVE PULMONARY DISEASE
     Dosage: ONE PILL ONE TIME A DAY PO
     Route: 048
     Dates: start: 20101020, end: 20101029
  2. LEVAQUIN [Suspect]
     Indication: SINUSITIS
     Dosage: ONE PILL ONE TIME A DAY PO
     Route: 048
     Dates: start: 20101020, end: 20101029

REACTIONS (7)
  - ARTHRALGIA [None]
  - ASTHENIA [None]
  - JOINT SWELLING [None]
  - MUSCLE DISORDER [None]
  - OEDEMA PERIPHERAL [None]
  - PAIN IN EXTREMITY [None]
  - TENDON PAIN [None]
